FAERS Safety Report 8301686-1 (Version None)
Quarter: 2012Q2

REPORT INFORMATION
  Report Type: 
  Country: None (occurrence: None)
  Receive Date: 20120420
  Receipt Date: 20120416
  Transmission Date: 20120825
  Serious: Yes (Death, Disabling)
  Sender: FDA-Public Use
  Company Number: US-EISAI INC-E7389-01157-CLI-US

PATIENT
  Sex: Female

DRUGS (62)
  1. ASPIRIN [Concomitant]
     Route: 048
     Dates: start: 19990101
  2. IBUPROFEN [Concomitant]
     Route: 048
     Dates: start: 20090903
  3. DEXAMETHASONE [Concomitant]
     Route: 048
     Dates: start: 20100812
  4. ZOFRAN [Concomitant]
     Indication: VOMITING
     Route: 042
     Dates: start: 20110131, end: 20110204
  5. PEMETREXED [Concomitant]
     Indication: NON-SMALL CELL LUNG CANCER
     Route: 041
     Dates: start: 20100813, end: 20110106
  6. ATIVAN [Concomitant]
     Indication: ANXIETY
     Route: 048
     Dates: start: 20090811
  7. FOLIC ACID [Concomitant]
     Route: 048
     Dates: start: 20100805
  8. FENTANYL-100 [Concomitant]
     Route: 042
     Dates: start: 20120130, end: 20120130
  9. INSULIN [Concomitant]
     Route: 058
     Dates: start: 20110131, end: 20110206
  10. GLYCOPYRROLATE [Concomitant]
     Indication: SECRETION DISCHARGE
     Route: 042
     Dates: start: 20110209, end: 20110209
  11. GLYCOPYRROLATE [Concomitant]
     Route: 042
     Dates: start: 20110131, end: 20110204
  12. LISINOPRIL [Concomitant]
     Indication: HYPERTENSION
     Route: 048
     Dates: start: 20110130, end: 20110204
  13. MORPHINE [Concomitant]
     Route: 042
     Dates: start: 20110131, end: 20110204
  14. PERCOCET [Concomitant]
     Indication: PAIN
     Route: 048
     Dates: start: 20110130, end: 20110203
  15. VITAMIN D [Concomitant]
     Indication: OSTEOPENIA
     Route: 048
     Dates: start: 20050101
  16. MULTI-VITAMIN [Concomitant]
     Route: 048
     Dates: start: 20000101
  17. MYCELEX [Concomitant]
     Indication: ANTIFUNGAL PROPHYLAXIS
     Route: 048
     Dates: start: 20110204, end: 20110205
  18. LORAZEPAM [Concomitant]
     Indication: ANXIETY
     Route: 042
     Dates: start: 20110204, end: 20110209
  19. MAGNESIUM OXIDE [Concomitant]
     Route: 042
     Dates: start: 20110131, end: 20110204
  20. MORPHINE [Concomitant]
     Indication: PAIN
     Route: 042
     Dates: start: 20110130, end: 20110209
  21. NARCAN [Concomitant]
     Route: 042
     Dates: start: 20110131, end: 20110204
  22. PIPERACILLIN - TAZO [Concomitant]
     Indication: SEPSIS SYNDROME
     Route: 042
     Dates: start: 20110130, end: 20110207
  23. DETROL LA [Concomitant]
     Indication: INCONTINENCE
     Route: 048
     Dates: start: 20010101
  24. TESALON PERLES [Concomitant]
     Route: 048
     Dates: start: 20110113
  25. FRAGMIN [Concomitant]
     Indication: PULMONARY EMBOLISM
     Route: 058
     Dates: start: 20110121, end: 20110209
  26. DIGOXIN [Concomitant]
     Route: 042
     Dates: start: 20110131, end: 20110204
  27. LISINOPRIL [Concomitant]
     Route: 042
     Dates: start: 20110131, end: 20110204
  28. MAGNESIUM OXIDE [Concomitant]
     Route: 048
     Dates: start: 20110130, end: 20110205
  29. CALCIUM [Concomitant]
     Indication: OSTEOPENIA
     Route: 048
     Dates: start: 20050101
  30. OMEPRAZOLE [Concomitant]
     Route: 048
     Dates: start: 19890101
  31. TRIAMCINOLONE ACETONIDE [Concomitant]
     Route: 048
     Dates: start: 20090801
  32. CATAPRES [Concomitant]
     Indication: HYPERTENSION
     Route: 048
     Dates: start: 20110201, end: 20110209
  33. ASCORBIC ACID [Concomitant]
     Route: 048
     Dates: start: 20110130, end: 20110205
  34. DIGOXIN [Concomitant]
     Indication: ATRIAL FIBRILLATION
     Route: 042
     Dates: start: 20110130, end: 20110130
  35. ROBITUSSIN W/ CODEINE [Concomitant]
     Indication: COUGH
     Route: 048
     Dates: start: 20110203, end: 20110204
  36. METOPROLOL TARTRATE [Concomitant]
     Indication: HYPERTENSION
     Route: 048
     Dates: start: 20090724
  37. SIMVASTATIN [Concomitant]
     Indication: HYPERCHOLESTEROLAEMIA
     Route: 048
     Dates: start: 20030101
  38. FISH OIL [Concomitant]
     Route: 048
     Dates: start: 20000101
  39. ASCORBIC ACID [Concomitant]
     Route: 048
     Dates: start: 20050101
  40. FEXOFENADINE [Concomitant]
     Route: 048
     Dates: start: 20070101
  41. VERSED [Concomitant]
     Route: 042
     Dates: start: 20120130, end: 20120130
  42. ALBUTEROL-ITRATROPIUM [Concomitant]
     Route: 055
     Dates: start: 20110130, end: 20110208
  43. AMIODARONE HCL [Concomitant]
     Indication: ATRIAL FIBRILLATION
     Route: 042
     Dates: start: 20110131, end: 20110131
  44. SODIUM CHLORIDE [Concomitant]
     Indication: DEHYDRATION
     Route: 042
     Dates: start: 20110204, end: 20110204
  45. ZOFRAN [Concomitant]
     Indication: NAUSEA
     Route: 042
     Dates: start: 20110130, end: 20110205
  46. SOLU-MEDROL [Concomitant]
     Indication: EMPHYSEMA
     Route: 042
     Dates: start: 20110131, end: 20110208
  47. VANCOMYCIN [Concomitant]
     Indication: SEPSIS SYNDROME
     Route: 042
     Dates: start: 20110130, end: 20110206
  48. EPIRUBICIN HYDROCHLORIDE [Suspect]
     Indication: NON-SMALL CELL LUNG CANCER
     Route: 041
     Dates: start: 20100813, end: 20110106
  49. VICODIN [Concomitant]
     Indication: PAIN
     Route: 048
     Dates: start: 20090821
  50. ZOLOFT [Concomitant]
     Indication: DEPRESSION
     Route: 048
     Dates: start: 20100301
  51. HEPARIN [Concomitant]
     Route: 042
     Dates: start: 20110130, end: 20110209
  52. HEPARIN [Concomitant]
     Route: 042
     Dates: start: 20110131, end: 20110204
  53. LORAZEPAM [Concomitant]
     Route: 042
     Dates: start: 20110131, end: 20110204
  54. PROTONIX [Concomitant]
     Route: 048
     Dates: start: 20110130, end: 20110205
  55. VITAMIN B6 [Concomitant]
     Route: 048
     Dates: start: 20100301
  56. TYLENOL (CAPLET) [Concomitant]
     Route: 048
     Dates: start: 20100910
  57. ALPRAZOLAM [Concomitant]
     Indication: ANXIETY
     Route: 048
     Dates: start: 20100506
  58. CHLORMIDAZOLE [Concomitant]
     Route: 048
     Dates: start: 20110204, end: 20110209
  59. NARCAN [Concomitant]
     Route: 042
     Dates: start: 20110205, end: 20110205
  60. SODIUM CHLORIDE [Concomitant]
     Route: 042
     Dates: start: 20110131, end: 20110204
  61. MUCINEX [Concomitant]
     Route: 048
     Dates: start: 20110202, end: 20110205
  62. VESICARE [Concomitant]
     Indication: INCONTINENCE
     Route: 048
     Dates: start: 20110130, end: 20110205

REACTIONS (2)
  - CEREBRAL INFARCTION [None]
  - LOSS OF CONSCIOUSNESS [None]
